FAERS Safety Report 8599456-2 (Version None)
Quarter: 2012Q3

REPORT INFORMATION
  Report Type: 
  Country: None (occurrence: None)
  Receive Date: 20120816
  Receipt Date: 20120816
  Transmission Date: 20120928
  Serious: Yes (Other)
  Sender: FDA-Public Use
  Company Number: US-BAYER-2012-075033

PATIENT
  Age: 53 Year
  Sex: Female

DRUGS (1)
  1. ULTRAVIST 150 [Suspect]
     Indication: COMPUTERISED TOMOGRAM
     Dosage: 121 ML, ONCE

REACTIONS (10)
  - SNEEZING [None]
  - ERYTHEMA [None]
  - NAUSEA [None]
  - EYE SWELLING [None]
  - LOCALISED OEDEMA [None]
  - CONTRAST MEDIA ALLERGY [None]
  - PHARYNGEAL OEDEMA [None]
  - VOMITING [None]
  - COUGH [None]
  - SWELLING FACE [None]
